FAERS Safety Report 25481872 (Version 2)
Quarter: 2025Q3

REPORT INFORMATION
  Report Type: Spontaneous
  Country: US (occurrence: US)
  Receive Date: 20250626
  Receipt Date: 20250704
  Transmission Date: 20251021
  Serious: No
  Sender: UNITED THERAPEUTICS
  Company Number: US-UNITED THERAPEUTICS-UNT-2025-020519

PATIENT
  Sex: Male
  Weight: 72.562 kg

DRUGS (16)
  1. TYVASO DPI [Suspect]
     Active Substance: TREPROSTINIL
     Indication: Idiopathic pulmonary fibrosis
     Dosage: 16 ?G, QID
     Dates: start: 2025, end: 2025
  2. TYVASO DPI [Suspect]
     Active Substance: TREPROSTINIL
     Dosage: 32 ?G, QID
     Dates: start: 2025
  3. TYVASO DPI [Suspect]
     Active Substance: TREPROSTINIL
  4. TYVASO DPI [Suspect]
     Active Substance: TREPROSTINIL
     Indication: Idiopathic pulmonary fibrosis
  5. TYVASO DPI [Suspect]
     Active Substance: TREPROSTINIL
     Indication: Idiopathic pulmonary fibrosis
  6. LOSARTAN [Suspect]
     Active Substance: LOSARTAN
     Indication: Product used for unknown indication
  7. HYDROCHLOROTHIAZIDE [Suspect]
     Active Substance: HYDROCHLOROTHIAZIDE
     Indication: Product used for unknown indication
  8. LIPITOR [Concomitant]
     Active Substance: ATORVASTATIN CALCIUM
     Indication: Product used for unknown indication
  9. LEVOTHYROXINE SODIUM [Concomitant]
     Active Substance: LEVOTHYROXINE SODIUM
     Indication: Product used for unknown indication
  10. OFEV [Concomitant]
     Active Substance: NINTEDANIB
     Indication: Product used for unknown indication
  11. ALLOPURINOL [Concomitant]
     Active Substance: ALLOPURINOL
     Indication: Product used for unknown indication
  12. AMLODIPINE AND ATORVASTATIN [Concomitant]
     Active Substance: AMLODIPINE BESYLATE\ATORVASTATIN CALCIUM
     Indication: Product used for unknown indication
  13. OXYGEN [Concomitant]
     Active Substance: OXYGEN
     Indication: Product used for unknown indication
  14. ASPIRIN [Concomitant]
     Active Substance: ASPIRIN
     Indication: Product used for unknown indication
  15. Glucosamine and Chondroitin with Msm [Concomitant]
     Indication: Product used for unknown indication
  16. LASIX [Concomitant]
     Active Substance: FUROSEMIDE
     Indication: Oedema

REACTIONS (6)
  - Cough [Unknown]
  - Hypotension [Recovered/Resolved]
  - Oropharyngeal pain [Unknown]
  - Oedema [Not Recovered/Not Resolved]
  - Idiopathic pulmonary fibrosis [Unknown]
  - Off label use [Unknown]

NARRATIVE: CASE EVENT DATE: 20250101
